FAERS Safety Report 12430039 (Version 2)
Quarter: 2016Q3

REPORT INFORMATION
  Report Type: Spontaneous
  Country: JP (occurrence: JP)
  Receive Date: 20160602
  Receipt Date: 20160824
  Transmission Date: 20161109
  Serious: Yes (Death, Life-Threatening, Hospitalization)
  Sender: FDA-Public Use
  Company Number: JP-MALLINCKRODT-T201602075

PATIENT
  Age: 43 Year
  Sex: Male
  Weight: 68 kg

DRUGS (65)
  1. OFIRMEV [Suspect]
     Active Substance: ACETAMINOPHEN
     Dosage: 1 G
     Route: 042
     Dates: start: 20160411, end: 20160411
  2. OFIRMEV [Suspect]
     Active Substance: ACETAMINOPHEN
     Dosage: 2600 MG
     Route: 042
     Dates: start: 20160412, end: 20160412
  3. OFIRMEV [Suspect]
     Active Substance: ACETAMINOPHEN
     Dosage: 3000 MG
     Route: 042
     Dates: start: 20160414, end: 20160414
  4. CALONAL [Suspect]
     Active Substance: ACETAMINOPHEN
     Indication: ANTIPYRESIS
     Dosage: 400 MG
     Route: 048
     Dates: start: 20160408, end: 20160416
  5. TAKECAB [Concomitant]
     Active Substance: VONOPRAZAN FUMURATE
     Dosage: 20 MG
     Route: 048
     Dates: start: 20160524, end: 20160615
  6. SAMSCA [Concomitant]
     Active Substance: TOLVAPTAN
     Dosage: 7500 UG
     Route: 048
     Dates: start: 20160608, end: 20160614
  7. DOPAMINE [Concomitant]
     Active Substance: DOPAMINE\DOPAMINE HYDROCHLORIDE
     Dosage: UNK
     Route: 042
     Dates: start: 20160428, end: 20160614
  8. BUIPEL [Concomitant]
     Dosage: UNK
     Route: 041
     Dates: start: 20160428, end: 20160611
  9. MINOCYCLINE HYDROCHLORIDE. [Concomitant]
     Active Substance: MINOCYCLINE HYDROCHLORIDE
     Dosage: 200 MG
     Route: 041
     Dates: start: 20160501, end: 20160511
  10. FINIBAX [Concomitant]
     Active Substance: DORIPENEM MONOHYDRATE
     Dosage: 1.5 G
     Route: 041
     Dates: start: 20160421, end: 20160425
  11. PLATELETS [Concomitant]
     Active Substance: HUMAN PLATELET, ALLOGENIC
  12. OFIRMEV [Suspect]
     Active Substance: ACETAMINOPHEN
     Dosage: 1600 MG
     Route: 042
     Dates: start: 20160419, end: 20160419
  13. FLAGYL [Concomitant]
     Active Substance: METRONIDAZOLE\METRONIDAZOLE HYDROCHLORIDE
     Dosage: 1500 MG
     Route: 048
     Dates: start: 20160411, end: 20160414
  14. BARACLUDE [Concomitant]
     Active Substance: ENTECAVIR
     Dosage: 500 UG
     Route: 048
     Dates: start: 20160425, end: 20160521
  15. PANTETHINE [Concomitant]
     Active Substance: PANTETHINE
     Dosage: 600 NG
     Route: 048
     Dates: start: 20160428, end: 20160502
  16. PREDONINE [Concomitant]
     Active Substance: PREDNISOLONE\PREDNISOLONE ACETATE\PREDNISOLONE SODIUM SUCCINATE
     Dosage: 40 MG
     Route: 042
     Dates: start: 20160505
  17. OFIRMEV [Suspect]
     Active Substance: ACETAMINOPHEN
     Dosage: 3 G
     Route: 042
     Dates: start: 20160402, end: 20160402
  18. OFIRMEV [Suspect]
     Active Substance: ACETAMINOPHEN
     Dosage: 1400 MG
     Route: 042
     Dates: start: 20160413, end: 20160413
  19. ADOAIR [Concomitant]
     Active Substance: FLUTICASONE PROPIONATE\SALMETEROL XINAFOATE
     Dosage: 500 UG
     Dates: end: 20160613
  20. FEBURIC [Concomitant]
     Active Substance: FEBUXOSTAT
     Dosage: 10 MG
     Route: 048
     Dates: start: 20160423, end: 20160430
  21. BENAMBAX [Concomitant]
     Active Substance: PENTAMIDINE
     Dosage: 300 MG
     Dates: start: 20160510, end: 20160610
  22. FUROSEMIDE. [Concomitant]
     Active Substance: FUROSEMIDE
     Dosage: UNK
     Route: 042
     Dates: start: 20160428, end: 20160615
  23. FUROSEMIDE. [Concomitant]
     Active Substance: FUROSEMIDE
     Dosage: 20 MG
     Route: 041
     Dates: start: 20160418, end: 20160418
  24. TENOZET [Concomitant]
     Active Substance: TENOFOVIR DISOPROXIL FUMARATE
     Dosage: 300 MG
     Route: 048
     Dates: start: 20160526, end: 20160604
  25. FINIBAX [Concomitant]
     Active Substance: DORIPENEM MONOHYDRATE
     Dosage: 1.5 G
     Route: 041
     Dates: start: 20160405, end: 20160408
  26. TEICOPLANIN [Concomitant]
     Active Substance: TEICOPLANIN
     Dosage: UNK
     Route: 041
     Dates: start: 20160613, end: 20160614
  27. ALBUMIN [Concomitant]
     Active Substance: ALBUMIN HUMAN
     Dosage: UNK
     Route: 041
     Dates: start: 20160408, end: 20160614
  28. FRESH FROZEN PLASMA [Concomitant]
     Active Substance: HUMAN PLASMA
  29. CONCENTRATED RED CELLS [Concomitant]
     Active Substance: HUMAN RED BLOOD CELL
  30. OFIRMEV [Suspect]
     Active Substance: ACETAMINOPHEN
     Indication: PAIN
     Dosage: 1 G
     Route: 042
     Dates: start: 20160331, end: 20160401
  31. OFIRMEV [Suspect]
     Active Substance: ACETAMINOPHEN
     Dosage: 2 G
     Route: 042
     Dates: start: 20160405, end: 20160405
  32. OFIRMEV [Suspect]
     Active Substance: ACETAMINOPHEN
     Dosage: 3000 MG
     Route: 042
     Dates: start: 20160417, end: 20160417
  33. NOREPINEPHRINE [Concomitant]
     Active Substance: NOREPINEPHRINE\NOREPINEPHRINE BITARTRATE
     Dosage: UNK
     Route: 042
     Dates: start: 20160429, end: 20160614
  34. SOL-MELCORT [Concomitant]
     Active Substance: METHYLPREDNISOLONE SODIUM SUCCINATE
     Dosage: 1000 MG
     Route: 041
     Dates: start: 20160427, end: 20160429
  35. TAKEPRON [Concomitant]
     Active Substance: LANSOPRAZOLE
     Dosage: 60 MG
     Route: 042
     Dates: start: 20160402, end: 20160404
  36. OFIRMEV [Suspect]
     Active Substance: ACETAMINOPHEN
     Dosage: 1 G
     Route: 042
     Dates: start: 20160406, end: 20160408
  37. OFIRMEV [Suspect]
     Active Substance: ACETAMINOPHEN
     Dosage: 2 G
     Route: 042
     Dates: start: 20160409, end: 20160410
  38. CALONAL [Suspect]
     Active Substance: ACETAMINOPHEN
     Dosage: UNK
     Route: 048
     Dates: start: 20160424, end: 20160428
  39. FUNGIZONE [Concomitant]
     Active Substance: AMPHOTERICIN B
     Dosage: 300 MG
     Route: 048
     Dates: start: 20160426, end: 20160506
  40. CANCIDAS [Concomitant]
     Active Substance: CASPOFUNGIN ACETATE
     Dosage: 70 MG
     Route: 041
     Dates: start: 20160429, end: 20160504
  41. FAMOTIDINE. [Concomitant]
     Active Substance: FAMOTIDINE
     Dosage: UNK
     Route: 042
     Dates: start: 20160510, end: 20160516
  42. OFIRMEV [Suspect]
     Active Substance: ACETAMINOPHEN
     Dosage: 2600 MG
     Route: 042
     Dates: start: 20160420, end: 20160422
  43. TRAMAL [Concomitant]
     Active Substance: TRAMADOL
     Dosage: 2500 UG
     Route: 048
     Dates: start: 20160517, end: 20160608
  44. SANGLOPOR [Concomitant]
     Active Substance: HUMAN IMMUNOGLOBULIN G
     Dosage: 2.5 G
     Route: 041
     Dates: start: 20160427, end: 20160511
  45. SOL-MELCORT [Concomitant]
     Active Substance: METHYLPREDNISOLONE SODIUM SUCCINATE
     Dosage: 625 MG
     Dates: start: 20160430, end: 20160501
  46. CEFAZOLIN NA [Concomitant]
     Dosage: 2 G
     Route: 041
     Dates: start: 20160420, end: 20160420
  47. OFIRMEV [Suspect]
     Active Substance: ACETAMINOPHEN
     Dosage: 1600 MG
     Route: 042
     Dates: start: 20160415, end: 20160415
  48. OFIRMEV [Suspect]
     Active Substance: ACETAMINOPHEN
     Dosage: 2400 MG
     Route: 042
     Dates: start: 20160416, end: 20160416
  49. OFIRMEV [Suspect]
     Active Substance: ACETAMINOPHEN
     Dosage: 2000 MG
     Route: 042
     Dates: start: 20160418, end: 20160418
  50. CALONAL [Suspect]
     Active Substance: ACETAMINOPHEN
     Dosage: 2800 MG
     Route: 048
     Dates: start: 20160423, end: 20160423
  51. MEPTIN [Concomitant]
     Active Substance: PROCATEROL HYDROCHLORIDE
     Dosage: UNK
     Dates: end: 20160613
  52. PREDNISOLONE. [Concomitant]
     Active Substance: PREDNISOLONE
     Dosage: UNK
     Route: 048
     Dates: start: 20160426, end: 20160615
  53. FUROSEMIDE. [Concomitant]
     Active Substance: FUROSEMIDE
     Dosage: 240 MG
     Route: 048
     Dates: start: 20160525, end: 20160601
  54. FUROSEMIDE. [Concomitant]
     Active Substance: FUROSEMIDE
     Dosage: UNK
  55. SOL-MELCORT [Concomitant]
     Active Substance: METHYLPREDNISOLONE SODIUM SUCCINATE
     Dosage: 500 MG
     Route: 041
     Dates: start: 20160502, end: 20160502
  56. ZOSYN [Concomitant]
     Active Substance: PIPERACILLIN SODIUM\TAZOBACTAM SODIUM
     Dosage: 9 G
     Route: 041
     Dates: start: 20160531, end: 20160614
  57. OFIRMEV [Suspect]
     Active Substance: ACETAMINOPHEN
     Dosage: 2 G
     Route: 042
     Dates: start: 20160403, end: 20160403
  58. CALONAL [Suspect]
     Active Substance: ACETAMINOPHEN
     Dosage: 1500 MG
     Route: 048
     Dates: start: 20160418, end: 20160422
  59. SENNOSIDE                          /00571901/ [Concomitant]
     Active Substance: SENNOSIDES A AND B
     Dosage: 12 MG
     Route: 048
     Dates: start: 20160407, end: 20160410
  60. NEXIUM [Concomitant]
     Active Substance: ESOMEPRAZOLE MAGNESIUM
     Dosage: 20 MG
     Route: 048
     Dates: start: 20160423, end: 20160430
  61. BIO-THREE [Concomitant]
     Active Substance: HERBALS
     Dosage: 3 DF
     Route: 048
     Dates: start: 20160425, end: 20160505
  62. GASCON [Concomitant]
     Active Substance: DIMETHICONE
     Dosage: 240 ML
     Route: 048
     Dates: start: 20160430, end: 20160517
  63. RECOMODULIN [Concomitant]
     Active Substance: THROMBOMODULIN ALFA
     Dosage: 6400 IU
     Route: 041
     Dates: start: 20160429, end: 20160506
  64. CEFTRIAXONE NA [Concomitant]
     Active Substance: CEFTRIAXONE
     Dosage: 2 G
     Route: 041
     Dates: start: 20160331, end: 20160405
  65. CRAVIT [Concomitant]
     Active Substance: LEVOFLOXACIN
     Dosage: 250 MG
     Route: 041
     Dates: start: 20160428, end: 20160510

REACTIONS (1)
  - Stevens-Johnson syndrome [Fatal]

NARRATIVE: CASE EVENT DATE: 20160512
